FAERS Safety Report 8923818 (Version 1)
Quarter: 2012Q4

REPORT INFORMATION
  Report Type: 
  Country: US (occurrence: US)
  Receive Date: 20121126
  Receipt Date: 20121126
  Transmission Date: 20130627
  Serious: Yes (Other)
  Sender: FDA-Public Use
  Company Number: US-BAYER-2012-121502

PATIENT
  Sex: Female

DRUGS (2)
  1. MAGNEVIST [Suspect]
     Dosage: 17 ml, ONCE
     Dates: start: 20080506, end: 20080506
  2. CHELATION THERAPY [Concomitant]

REACTIONS (34)
  - Swelling face [None]
  - Eye swelling [None]
  - Toxicity to various agents [None]
  - Idiopathic thrombocytopenic purpura [None]
  - Platelet count decreased [None]
  - Fatigue [None]
  - Respiratory disorder [None]
  - Rhinorrhoea [None]
  - Upper respiratory tract inflammation [None]
  - Pneumonitis [None]
  - Nasal mucosal disorder [None]
  - Skin exfoliation [None]
  - Rash [None]
  - Rash [None]
  - Upper extremity mass [None]
  - Lower extremity mass [None]
  - Skin lesion [None]
  - Arthralgia [None]
  - Gait disturbance [None]
  - Muscular weakness [None]
  - Fall [None]
  - Facial bones fracture [None]
  - Autoimmune disorder [None]
  - Blood blister [None]
  - Contusion [None]
  - Rheumatoid arthritis [None]
  - Raynaud^s phenomenon [None]
  - Cyanosis [None]
  - Fibromyalgia [None]
  - Undifferentiated connective tissue disease [None]
  - Transplant rejection [None]
  - Nausea [None]
  - Headache [None]
  - Pain [None]
